FAERS Safety Report 8079911-4 (Version None)
Quarter: 2012Q1

REPORT INFORMATION
  Report Type: 
  Country: None (occurrence: None)
  Receive Date: 20120128
  Receipt Date: 20110723
  Transmission Date: 20120608
  Serious: No
  Sender: FDA-Public Use
  Company Number: US-ABBOTT-11P-163-0841293-00

PATIENT
  Age: 29 Year
  Sex: Female

DRUGS (2)
  1. PAMELOR [Concomitant]
     Indication: DEPRESSION
     Route: 048
  2. HUMIRA [Suspect]
     Indication: CROHN'S DISEASE
     Dates: start: 20100301

REACTIONS (3)
  - INJECTION SITE REACTION [None]
  - INJECTION SITE RASH [None]
  - SINUSITIS [None]
